FAERS Safety Report 6391235-X (Version None)
Quarter: 2009Q4

REPORT INFORMATION
  Report Type: 
  Country: None (occurrence: None)
  Receive Date: 20091007
  Receipt Date: 20091001
  Transmission Date: 20100525
  Serious: Yes (Hospitalization, Congenital Anomaly)
  Sender: FDA-Public Use
  Company Number: NL-WYE-G04549309

PATIENT
  Sex: Male

DRUGS (4)
  1. VENLAFAXINE HYDROCHLORIDE [Suspect]
     Indication: DEPRESSION
     Dosage: 75 MG
     Route: 064
     Dates: start: 20080716
  2. VENLAFAXINE HYDROCHLORIDE [Suspect]
     Indication: ANXIETY DISORDER
  3. ALDOMET [Concomitant]
     Indication: HYPERTENSION
     Dosage: 250 MG
     Route: 064
     Dates: start: 20090810, end: 20090816
  4. ALDOMET [Concomitant]
     Dosage: 500 MG
     Route: 064
     Dates: start: 20090817, end: 20090826

REACTIONS (2)
  - DRUG EXPOSURE DURING PREGNANCY [None]
  - OXYGEN SATURATION DECREASED [None]
